FAERS Safety Report 13158983 (Version 3)
Quarter: 2017Q1

REPORT INFORMATION
  Report Type: Spontaneous
  Country: TR (occurrence: TR)
  Receive Date: 20170127
  Receipt Date: 20170210
  Transmission Date: 20170428
  Serious: Yes (Death, Other)
  Sender: FDA-Public Use
  Company Number: TR-GLAXOSMITHKLINE-TR2017GSK010819

PATIENT
  Age: 33 Year
  Sex: Female
  Weight: 70 kg

DRUGS (4)
  1. KOLSIN [Suspect]
     Active Substance: COLCHICINE
     Indication: GOUT
     Dosage: UNK UNK, TID
     Route: 048
     Dates: start: 20170103, end: 20170109
  2. FUCIDIN [Concomitant]
     Active Substance: FUSIDIC ACID
     Dosage: UNK
     Route: 042
     Dates: start: 20170103, end: 20170109
  3. VOLTAREN [Suspect]
     Active Substance: DICLOFENAC SODIUM
     Indication: ARTHRITIS
     Dosage: 75 MG, QD
     Route: 048
     Dates: start: 20170103, end: 20170109
  4. NIZATIDINE. [Concomitant]
     Active Substance: NIZATIDINE
     Dosage: UNK
     Dates: start: 20170103, end: 20170109

REACTIONS (4)
  - Blood creatine increased [Fatal]
  - Blood urea increased [Fatal]
  - Vomiting [Fatal]
  - Nausea [Fatal]

NARRATIVE: CASE EVENT DATE: 20170107
